FAERS Safety Report 9892625 (Version 1)
Quarter: 2014Q1

REPORT INFORMATION
  Report Type: Spontaneous
  Country: ES (occurrence: ES)
  Receive Date: 20140212
  Receipt Date: 20140212
  Transmission Date: 20141002
  Serious: Yes (Hospitalization)
  Sender: FDA-Public Use
  Company Number: PHHY2014ES016900

PATIENT
  Age: 26 Year
  Sex: Male

DRUGS (7)
  1. MYFORTIC [Suspect]
     Indication: RENAL TRANSPLANT
     Dosage: 720 MG, QD
     Route: 048
     Dates: start: 201112
  2. ADVAGRAF [Suspect]
     Indication: RENAL TRANSPLANT
     Dosage: 2 MG, QD
     Route: 048
     Dates: start: 201112
  3. ANAFRANIL [Concomitant]
     Dosage: UNK UKN, UNK
  4. CYMBALTA [Concomitant]
     Dosage: UNK UKN, UNK
  5. CLONAZEPAM [Concomitant]
     Indication: DEPRESSION
     Dosage: 0.5 MG, QD
     Route: 048
     Dates: start: 201106
  6. TRAZODONE [Concomitant]
     Indication: DEPRESSION
     Dosage: 50 MG, QD
     Route: 048
     Dates: start: 201106
  7. AMLODIPINE [Concomitant]
     Indication: HYPERTENSION
     Dosage: 5 MG, QD
     Route: 048
     Dates: start: 201112

REACTIONS (7)
  - Suicide attempt [Unknown]
  - Cytomegalovirus infection [Recovered/Resolved]
  - Pyrexia [Unknown]
  - Blood urea decreased [Unknown]
  - Haematocrit decreased [Unknown]
  - Blood creatinine increased [Unknown]
  - Pharyngotonsillitis [Unknown]
